FAERS Safety Report 4560876-4 (Version None)
Quarter: 2005Q1

REPORT INFORMATION
  Report Type: 
  Country: None (occurrence: None)
  Receive Date: 20050121
  Receipt Date: 20050110
  Transmission Date: 20050727
  Serious: Yes (Hospitalization)
  Sender: FDA-Public Use
  Company Number: FABR-10972

PATIENT
  Age: 52 Year
  Sex: Male
  Weight: 58.9676 kg

DRUGS (6)
  1. FABRAZYME [Suspect]
     Indication: FABRY'S DISEASE
  2. REGLAN [Concomitant]
  3. CELLCEPT [Concomitant]
  4. PROGRAF [Concomitant]
  5. SEPTRA [Concomitant]
  6. DILANTIN [Concomitant]

REACTIONS (6)
  - BACK PAIN [None]
  - DYSPEPSIA [None]
  - HERPES ZOSTER [None]
  - MUSCLE STRAIN [None]
  - PAIN [None]
  - RASH PRURITIC [None]
